FAERS Safety Report 14968633 (Version 3)
Quarter: 2019Q1

REPORT INFORMATION
  Report Type: Spontaneous
  Country: US (occurrence: US)
  Receive Date: 20180604
  Receipt Date: 20190317
  Transmission Date: 20190417
  Serious: Yes (Life-Threatening, Other)
  Sender: FDA-Public Use
  Company Number: US-DRREDDYS-USA/USA/18/0099654

PATIENT
  Age: 26 Year
  Sex: Male

DRUGS (8)
  1. RISPERIDONE. [Concomitant]
     Active Substance: RISPERIDONE
     Indication: SCHIZOAFFECTIVE DISORDER
     Route: 065
  2. LITHIUM. [Concomitant]
     Active Substance: LITHIUM
     Indication: SCHIZOAFFECTIVE DISORDER
     Route: 065
  3. CLOZAPINE. [Concomitant]
     Active Substance: CLOZAPINE
     Indication: SCHIZOAFFECTIVE DISORDER
     Dosage: AT BEDTIME
     Route: 065
  4. INDOMETACIN [Suspect]
     Active Substance: INDOMETHACIN
     Indication: MYOCARDITIS
     Route: 065
  5. LISINOPRIL. [Suspect]
     Active Substance: LISINOPRIL
     Indication: MYOCARDITIS
     Route: 065
  6. TRAZODONE [Concomitant]
     Active Substance: TRAZODONE HYDROCHLORIDE
     Indication: SCHIZOAFFECTIVE DISORDER
     Dosage: AT BEDTIME
     Route: 065
  7. CARVEDILOL. [Suspect]
     Active Substance: CARVEDILOL
     Indication: MYOCARDITIS
     Route: 065
  8. COLCHICINE. [Suspect]
     Active Substance: COLCHICINE
     Indication: MYOCARDITIS
     Route: 065

REACTIONS (2)
  - Drug ineffective [Unknown]
  - Acute respiratory failure [Recovered/Resolved]
